FAERS Safety Report 5864073-1 (Version None)
Quarter: 2008Q3

REPORT INFORMATION
  Report Type: 
  Country: None (occurrence: None)
  Receive Date: 20080829
  Receipt Date: 20080820
  Transmission Date: 20090109
  Serious: Yes (Hospitalization)
  Sender: FDA-Public Use
  Company Number: PHHO2005US02153

PATIENT
  Sex: Female
  Weight: 57.8 kg

DRUGS (14)
  1. FEMARA [Suspect]
     Indication: BREAST CANCER
     Dosage: 2.5 MG, QD
     Route: 048
     Dates: start: 20030129
  2. NO TREATMENT RECEIVED NOMED [Suspect]
     Indication: METASTASES TO BONE
     Dosage: NO TREATMENT - DELAYED START
  3. NO TREATMENT RECEIVED NOMED [Suspect]
     Dosage: UNK
     Route: 042
     Dates: start: 20050209
  4. ASPIRIN [Concomitant]
     Indication: PROPHYLAXIS
     Dosage: 81 MG, QD
     Route: 048
     Dates: start: 19980101
  5. COREG [Concomitant]
     Indication: CARDIOMYOPATHY
     Dosage: 12.5 MG, BID
     Route: 048
     Dates: start: 19980101
  6. FUROSEMIDE [Concomitant]
     Indication: OEDEMA PERIPHERAL
     Dosage: 40 MG, BID
     Route: 048
     Dates: start: 19960101
  7. LANOXIN [Concomitant]
     Indication: CARDIOMYOPATHY
     Dosage: 0.25 MG, QD
     Route: 048
     Dates: start: 19960101
  8. LIPITOR [Concomitant]
     Indication: HYPERCHOLESTEROLAEMIA
     Dosage: 10 MG, QD
     Route: 048
     Dates: start: 19960101
  9. LISINOPRIL [Concomitant]
     Indication: CARDIOMYOPATHY
     Dosage: 40 MG, QD
     Route: 048
     Dates: start: 19960101
  10. VITAMIN D [Concomitant]
  11. CALCIUM [Concomitant]
  12. ASCORBIC ACID [Concomitant]
     Dosage: 400 MG, QD
     Route: 048
  13. MULTI-VITAMINS [Concomitant]
  14. VITAMIN E [Concomitant]
     Dosage: 400 IU, QD

REACTIONS (5)
  - BONE DENSITY DECREASED [None]
  - FALL [None]
  - FEMORAL NECK FRACTURE [None]
  - HIP ARTHROPLASTY [None]
  - OSTEOPOROSIS [None]
